FAERS Safety Report 21365573 (Version 1)
Quarter: 2022Q3

REPORT INFORMATION
  Report Type: Spontaneous
  Country: TR (occurrence: TR)
  Receive Date: 20220922
  Receipt Date: 20220922
  Transmission Date: 20221027
  Serious: Yes (Other)
  Sender: FDA-Public Use
  Company Number: TR-AMGEN-TURSP2022161561

PATIENT

DRUGS (6)
  1. ADALIMUMAB [Suspect]
     Active Substance: ADALIMUMAB
     Indication: Axial spondyloarthritis
     Route: 065
  2. ADALIMUMAB [Suspect]
     Active Substance: ADALIMUMAB
     Indication: Psoriatic arthropathy
  3. ADALIMUMAB [Suspect]
     Active Substance: ADALIMUMAB
     Indication: Rheumatoid arthritis
  4. CERTOLIZUMAB [Suspect]
     Active Substance: CERTOLIZUMAB
     Indication: Rheumatoid arthritis
     Route: 065
  5. CERTOLIZUMAB [Suspect]
     Active Substance: CERTOLIZUMAB
     Indication: Axial spondyloarthritis
  6. CERTOLIZUMAB [Suspect]
     Active Substance: CERTOLIZUMAB
     Indication: Psoriatic arthropathy

REACTIONS (3)
  - Premature rupture of membranes [Unknown]
  - Condition aggravated [Unknown]
  - Maternal exposure during pregnancy [Unknown]
